FAERS Safety Report 9379102 (Version 1)
Quarter: 2013Q2

REPORT INFORMATION
  Report Type: Spontaneous
  Country: US (occurrence: None)
  Receive Date: 20130626
  Receipt Date: 20130626
  Transmission Date: 20140414
  Serious: Yes (Hospitalization, Other)
  Sender: FDA-Public Use
  Company Number: AEGR000061

PATIENT
  Age: 50 Year
  Sex: Male

DRUGS (1)
  1. JUXTAPID [Suspect]
     Indication: HYPERCHOLESTEROLAEMIA
     Dates: start: 20130514, end: 20130605

REACTIONS (4)
  - Cholelithiasis [None]
  - Pancreatitis [None]
  - Infection [None]
  - Procedural pain [None]
